FAERS Safety Report 10652316 (Version 1)
Quarter: 2014Q4

REPORT INFORMATION
  Report Type: Spontaneous
  Country: US (occurrence: None)
  Receive Date: 20141212
  Receipt Date: 20141212
  Transmission Date: 20150529
  Serious: Yes (Other)
  Sender: FDA-Public Use
  Company Number: None

PATIENT
  Age: 41 Year
  Sex: Male
  Weight: 128.37 kg

DRUGS (21)
  1. ASPIRIN. [Concomitant]
     Active Substance: ASPIRIN
  2. CHOLESTOFF [Concomitant]
  3. ST JOHN^S WORT [Concomitant]
     Active Substance: ST. JOHN^S WORT
  4. SLEEP [Concomitant]
     Active Substance: DIPHENHYDRAMINE HYDROCHLORIDE
  5. B-100 [Concomitant]
  6. RESVERTOL [Concomitant]
  7. ADVIL [Concomitant]
     Active Substance: IBUPROFEN
  8. GINSENG (UNSPECIFIED) [Concomitant]
     Active Substance: ASIAN GINSENG
  9. RELAX [Concomitant]
  10. VITAMIN C [Concomitant]
     Active Substance: ASCORBIC ACID
  11. AGED GARLIC [Concomitant]
  12. COCONUT OIL [Concomitant]
     Active Substance: COCONUT OIL
  13. PROBROTICS [Concomitant]
  14. CPAP BREATHING MACHINE [Concomitant]
  15. GINGKO BILOBA [Concomitant]
  16. LISINOPRIL. [Suspect]
     Active Substance: LISINOPRIL
     Indication: HYPERTENSION
     Route: 048
     Dates: start: 20140905, end: 20141127
  17. SLEEPING PILLS [Concomitant]
     Active Substance: UNSPECIFIED INGREDIENT
  18. DMAE [Concomitant]
  19. MULTIVITAMIN [Concomitant]
     Active Substance: VITAMINS
  20. D3 [Concomitant]
     Active Substance: 25-HYDROXYCHOLECALCIFEROL, 5-TRANS-
  21. HAWTHORN BERRIES [Concomitant]

REACTIONS (5)
  - Visual impairment [None]
  - Fatigue [None]
  - Memory impairment [None]
  - Disturbance in attention [None]
  - Loss of employment [None]

NARRATIVE: CASE EVENT DATE: 20141107
